FAERS Safety Report 24989727 (Version 2)
Quarter: 2025Q1

REPORT INFORMATION
  Report Type: Spontaneous
  Country: US (occurrence: US)
  Receive Date: 20250220
  Receipt Date: 20250303
  Transmission Date: 20250409
  Serious: No
  Sender: ROCHE
  Company Number: US-ROCHE-10000203780

PATIENT
  Age: 57 Year
  Sex: Female
  Weight: 97.06 kg

DRUGS (12)
  1. PHESGO [Suspect]
     Active Substance: HYALURONIDASE-ZZXF\PERTUZUMAB\TRASTUZUMAB
     Indication: Breast cancer metastatic
     Route: 058
     Dates: start: 20241016
  2. DOCETAXEL [Concomitant]
     Active Substance: DOCETAXEL
  3. hyaluronidase-zzx [Concomitant]
  4. ZOFRAN [Concomitant]
     Active Substance: ONDANSETRON HYDROCHLORIDE
  5. NYSTATIN [Concomitant]
     Active Substance: NYSTATIN
  6. MOMETASONE [Concomitant]
     Active Substance: MOMETASONE
  7. IMODIUM [Concomitant]
     Active Substance: LOPERAMIDE HYDROCHLORIDE
  8. DIFLUCAN [Concomitant]
     Active Substance: FLUCONAZOLE
  9. LOMOTIL [Concomitant]
     Active Substance: ATROPINE SULFATE\DIPHENOXYLATE HYDROCHLORIDE
  10. DECADRON [Concomitant]
     Active Substance: DEXAMETHASONE
  11. FLEXERIL [Concomitant]
     Active Substance: CYCLOBENZAPRINE HYDROCHLORIDE
  12. XANAX [Concomitant]
     Active Substance: ALPRAZOLAM

REACTIONS (5)
  - Rash [Recovering/Resolving]
  - Product administration error [Unknown]
  - Swelling face [Recovering/Resolving]
  - Diarrhoea [Unknown]
  - Drug hypersensitivity [Unknown]

NARRATIVE: CASE EVENT DATE: 20250206
